FAERS Safety Report 23266974 (Version 3)
Quarter: 2025Q1

REPORT INFORMATION
  Report Type: Spontaneous
  Country: BG (occurrence: BG)
  Receive Date: 20231206
  Receipt Date: 20250312
  Transmission Date: 20250409
  Serious: Yes (Hospitalization, Other)
  Sender: NOVARTIS
  Company Number: BG-SANDOZ-SDZ2023BG062211

PATIENT
  Age: 82 Year
  Sex: Male

DRUGS (2)
  1. HYDROCHLOROTHIAZIDE\VALSARTAN [Suspect]
     Active Substance: HYDROCHLOROTHIAZIDE\VALSARTAN
     Indication: Product used for unknown indication
     Dosage: VALSARTAN 160/HYDROCHLOROTIAZIDE ONCE DAILY
     Route: 065
     Dates: start: 202001, end: 202309
  2. LERCANIDIPINE [Suspect]
     Active Substance: LERCANIDIPINE
     Indication: Hypertension
     Dosage: 10 MG, QD
     Route: 065

REACTIONS (1)
  - Squamous cell carcinoma of skin [Recovering/Resolving]
